FAERS Safety Report 5060596-6 (Version None)
Quarter: 2006Q3

REPORT INFORMATION
  Report Type: 
  Country: None (occurrence: None)
  Receive Date: 20060725
  Receipt Date: 20060713
  Transmission Date: 20061208
  Serious: Yes (Other)
  Sender: FDA-Public Use
  Company Number: PHEH2006US09057

PATIENT
  Sex: Female

DRUGS (1)
  1. FEMARA [Suspect]
     Indication: INFERTILITY

REACTIONS (2)
  - DRUG EXPOSURE BEFORE PREGNANCY [None]
  - FOETAL GROWTH RETARDATION [None]
